FAERS Safety Report 7051575-8 (Version None)
Quarter: 2010Q4

REPORT INFORMATION
  Report Type: 
  Country: None (occurrence: None)
  Receive Date: 20101012
  Receipt Date: 20100930
  Transmission Date: 20110411
  Serious: Yes (Hospitalization, Other)
  Sender: FDA-Public Use
  Company Number: 2009AC000035

PATIENT
  Age: 56 Year
  Sex: Female
  Weight: 113.3993 kg

DRUGS (30)
  1. DIGOXIN [Suspect]
     Indication: ARRHYTHMIA
     Dosage: 0.25 MG;QD;PO
     Route: 048
     Dates: start: 20040101
  2. DIGOXIN [Suspect]
     Indication: CARDIAC FAILURE
     Dosage: 0.25 MG;QD;PO
     Route: 048
     Dates: start: 20040101
  3. DIGOXIN [Suspect]
     Indication: ARRHYTHMIA
     Dosage: 0.5 MG;IV
     Route: 042
     Dates: start: 20040201, end: 20040201
  4. TOPROL-XL [Concomitant]
  5. PROTONIX [Concomitant]
  6. ZYRTEC [Concomitant]
  7. KEFLEX [Concomitant]
  8. WELLBUTRIN [Concomitant]
  9. BEXTRA [Concomitant]
  10. LORTAB [Concomitant]
  11. ASPIRIN [Concomitant]
  12. PENICILLIN [Concomitant]
  13. ZYDONE [Concomitant]
  14. VALIUM [Concomitant]
  15. PHENERGAN [Concomitant]
  16. ZITHROMAX [Concomitant]
  17. TAMIFLU [Concomitant]
  18. DURATUSS [Concomitant]
  19. PROVENTIL [Concomitant]
  20. MEDROL [Concomitant]
  21. TUSSIONEX [Concomitant]
  22. COUMADIN [Concomitant]
  23. LEVAQUIN [Concomitant]
  24. NAPROSYN [Concomitant]
  25. SOTALOL [Concomitant]
  26. LOVENOX [Concomitant]
  27. METOPROLOL [Concomitant]
  28. METFORMIN [Concomitant]
  29. ZESTRIL [Concomitant]
  30. PREVACID [Concomitant]

REACTIONS (35)
  - ABDOMINAL PAIN [None]
  - ABSCESS [None]
  - ALLERGY TO ARTHROPOD BITE [None]
  - ATRIAL FIBRILLATION [None]
  - ATRIOVENTRICULAR BLOCK COMPLETE [None]
  - CARDIOACTIVE DRUG LEVEL DECREASED [None]
  - CELLULITIS [None]
  - DIABETES MELLITUS [None]
  - DIABETIC NEPHROPATHY [None]
  - DIARRHOEA [None]
  - DIZZINESS [None]
  - DYSPNOEA [None]
  - ECONOMIC PROBLEM [None]
  - GASTRIC ULCER HAEMORRHAGE [None]
  - GASTROINTESTINAL DISORDER [None]
  - HEPATIC ENZYME INCREASED [None]
  - HEPATOMEGALY [None]
  - HOUSE DUST ALLERGY [None]
  - LEFT VENTRICULAR HYPERTROPHY [None]
  - LEUKOCYTOSIS [None]
  - MENOPAUSE [None]
  - MENTAL DISORDER [None]
  - MULTIPLE INJURIES [None]
  - OEDEMA [None]
  - PAIN [None]
  - PALPITATIONS [None]
  - PNEUMONIA [None]
  - POLYCYTHAEMIA [None]
  - PROTEIN URINE PRESENT [None]
  - PULMONARY EMBOLISM [None]
  - RASH [None]
  - SEASONAL ALLERGY [None]
  - SICK SINUS SYNDROME [None]
  - TREATMENT NONCOMPLIANCE [None]
  - URTICARIA CHRONIC [None]
